FAERS Safety Report 4825966-7 (Version None)
Quarter: 2005Q4

REPORT INFORMATION
  Report Type: 
  Country: None (occurrence: None)
  Receive Date: 20051111
  Receipt Date: 20051102
  Transmission Date: 20060501
  Serious: Yes (Hospitalization)
  Sender: FDA-Public Use
  Company Number: JP-ABBOTT-05P-087-0316734-00

PATIENT
  Sex: Male

DRUGS (5)
  1. CLARITHROMYCIN [Suspect]
     Indication: DRUG USE FOR UNKNOWN INDICATION
  2. ORUDIS [Suspect]
     Indication: DRUG USE FOR UNKNOWN INDICATION
  3. SOFALCONE [Suspect]
     Indication: DRUG USE FOR UNKNOWN INDICATION
  4. DEXTROMETHORPHAN HYDROBROMIDE [Suspect]
     Indication: DRUG USE FOR UNKNOWN INDICATION
  5. UNKNOWN DRUG [Suspect]
     Indication: DRUG USE FOR UNKNOWN INDICATION

REACTIONS (1)
  - INTERSTITIAL LUNG DISEASE [None]
